FAERS Safety Report 6392719-0 (Version None)
Quarter: 2009Q4

REPORT INFORMATION
  Report Type: 
  Country: None (occurrence: None)
  Receive Date: 20091007
  Receipt Date: 20090803
  Transmission Date: 20100525
  Serious: No
  Sender: FDA-Public Use
  Company Number: US-ALLERGAN-0910788US

PATIENT
  Sex: Female

DRUGS (2)
  1. LATISSE [Suspect]
     Indication: HYPOTRICHOSIS
     Dosage: UNK, QHS
     Route: 061
  2. LATISSE [Suspect]
     Dosage: UNK, QHS
     Route: 061

REACTIONS (3)
  - DRUG ADMINISTRATION ERROR [None]
  - ERYTHEMA OF EYELID [None]
  - EYELID OEDEMA [None]
